FAERS Safety Report 4708817-0 (Version None)
Quarter: 2005Q3

REPORT INFORMATION
  Report Type: 
  Country: None (occurrence: None)
  Receive Date: 20050705
  Receipt Date: 20050629
  Transmission Date: 20060218
  Serious: Yes (Death, Hospitalization)
  Sender: FDA-Public Use
  Company Number: 212246

PATIENT
  Age: 79 Year
  Sex: Male

DRUGS (1)
  1. ACTIVASE [Suspect]
     Indication: ISCHAEMIC STROKE
     Dates: start: 20040703, end: 20040703

REACTIONS (3)
  - HAEMOLYTIC ANAEMIA [None]
  - PNEUMONIA [None]
  - UROSEPSIS [None]
